FAERS Safety Report 11239661 (Version 2)
Quarter: 2015Q3

REPORT INFORMATION
  Report Type: Spontaneous
  Country: US (occurrence: US)
  Receive Date: 20150706
  Receipt Date: 20150803
  Transmission Date: 20151125
  Serious: No
  Sender: FDA-Public Use
  Company Number: US-JNJFOC-20150617010

PATIENT
  Age: 53 Year
  Sex: Male

DRUGS (2)
  1. DURAGESIC [Suspect]
     Active Substance: FENTANYL
     Indication: PAIN
     Route: 062
     Dates: start: 201403
  2. CLONAZEPAM. [Concomitant]
     Active Substance: CLONAZEPAM
     Route: 065

REACTIONS (4)
  - Blister [Recovering/Resolving]
  - Drug administered at inappropriate site [Unknown]
  - Sunburn [Recovering/Resolving]
  - Thermal burn [Recovering/Resolving]

NARRATIVE: CASE EVENT DATE: 201506
